FAERS Safety Report 7043839 (Version 2)
Quarter: 2020Q3

REPORT INFORMATION
  Report Type: Spontaneous
  Country: DK (occurrence: None)
  Receive Date: 20090618
  Receipt Date: 20091209
  Transmission Date: 20201105
  Serious: Yes (Life-Threatening, Hospitalization)
  Sender: FDA-Public Use
  Company Number: 1000006827

PATIENT
  Age: 69 Year
  Sex: Female
  Weight: 52 kg

DRUGS (12)
  1. FERROUS SULFATE. [Suspect]
     Active Substance: FERROUS SULFATE
     Dosage: 100 MG (100 MG,1 IN 1 D),ORAL
     Route: 048
     Dates: start: 200803, end: 20080530
  2. EXELON [Suspect]
     Active Substance: RIVASTIGMINE TARTRATE
     Indication: DEMENTIA
     Dosage: 6 MG (3 MG,2 IN 1 D),ORAL
     Route: 048
     Dates: start: 200803
  3. CLOZAPINE. [Concomitant]
     Active Substance: CLOZAPINE
  4. ASPIRIN. [Suspect]
     Active Substance: ASPIRIN
     Indication: ISCHAEMIC HEART DISEASE PROPHYLAXIS
     Dosage: 100 MG (100 MG,1 IN 1 D),ORAL
     Route: 048
     Dates: start: 200803, end: 20080530
  5. CALCIMAGON?D3(CHEWABLE TABLET) [Concomitant]
  6. LACTULOSE. [Concomitant]
     Active Substance: LACTULOSE
  7. NEXIUM (TABLETS) [Concomitant]
  8. MOTILIUM [Concomitant]
     Active Substance: DOMPERIDONE
  9. DUROGESIC (POULTICE OR PATCH) [Concomitant]
  10. CITALOPRAM HYDROBROMIDE. [Suspect]
     Active Substance: CITALOPRAM HYDROBROMIDE
     Indication: PSYCHOTIC DISORDER DUE TO A GENERAL MEDICAL CONDITION
     Dosage: 30 MG (30 MG,1 IN 1 D),ORAL
     Route: 048
     Dates: start: 200803
  11. VOLTAREN [Suspect]
     Active Substance: DICLOFENAC SODIUM
     Indication: BONE PAIN
     Dosage: 150 MG (75 MG,2 IN 1 D),ORAL
     Route: 048
     Dates: start: 200803, end: 20080601
  12. MADOPAR (TABLETS) [Concomitant]

REACTIONS (19)
  - Duodenal ulcer haemorrhage [None]
  - Dehydration [None]
  - Fatigue [None]
  - Creatinine renal clearance decreased [None]
  - Blood sodium increased [None]
  - Gastritis [None]
  - C-reactive protein increased [None]
  - Blood calcium decreased [None]
  - Diverticulum intestinal [None]
  - Hiatus hernia [None]
  - Anaemia [None]
  - Blood creatinine increased [None]
  - Erosive duodenitis [None]
  - White blood cell count increased [None]
  - General physical health deterioration [None]
  - Drug interaction [None]
  - Disturbance in attention [None]
  - Decreased appetite [None]
  - Helicobacter test positive [None]

NARRATIVE: CASE EVENT DATE: 20080524
